FAERS Safety Report 10727390 (Version 7)
Quarter: 2015Q2

REPORT INFORMATION
  Report Type: Spontaneous
  Country: US (occurrence: US)
  Receive Date: 20150121
  Receipt Date: 20150611
  Transmission Date: 20150821
  Serious: Yes (Hospitalization, Other)
  Sender: FDA-Public Use
  Company Number: US-009507513-1105USA02535

PATIENT
  Sex: Female
  Weight: 65.31 kg

DRUGS (4)
  1. ESTROGEN NOS [Concomitant]
     Active Substance: ESTROGENS
     Dosage: UNK
     Dates: start: 1990
  2. FOSAMAX [Suspect]
     Active Substance: ALENDRONATE SODIUM
     Indication: BONE DENSITY DECREASED
     Dosage: 70 MG, QW
     Route: 048
     Dates: start: 20010223, end: 20080718
  3. ALENDRONATE SODIUM. [Suspect]
     Active Substance: ALENDRONATE SODIUM
     Indication: BONE DENSITY DECREASED
     Dosage: 70 MG, UNK
     Route: 048
     Dates: start: 20081020
  4. ALENDRONATE SODIUM. [Suspect]
     Active Substance: ALENDRONATE SODIUM
     Dosage: 70 MG, UNK
     Dates: start: 20090127, end: 20090811

REACTIONS (37)
  - Spinal fusion surgery [Unknown]
  - Back pain [Not Recovered/Not Resolved]
  - Femur fracture [Unknown]
  - Neck pain [Not Recovered/Not Resolved]
  - Hyperlipidaemia [Unknown]
  - Hypercholesterolaemia [Unknown]
  - Intervertebral disc degeneration [Unknown]
  - Musculoskeletal chest pain [Not Recovered/Not Resolved]
  - Cervical radiculopathy [Unknown]
  - Spinal column stenosis [Unknown]
  - Intramedullary rod insertion [Unknown]
  - Femur fracture [Unknown]
  - Fracture nonunion [Unknown]
  - Surgery [Unknown]
  - Hand fracture [Unknown]
  - Spinal disorder [Unknown]
  - Blood parathyroid hormone decreased [Unknown]
  - Pain in extremity [Not Recovered/Not Resolved]
  - Cervical spinal stenosis [Unknown]
  - Vertebral foraminal stenosis [Unknown]
  - Rotator cuff repair [Unknown]
  - Osteoarthritis [Unknown]
  - Hysterectomy [Unknown]
  - Drug ineffective [Not Recovered/Not Resolved]
  - Osteoporosis [Unknown]
  - Hypertension [Unknown]
  - Neuralgia [Unknown]
  - Animal bite [Unknown]
  - Urine calcium increased [Unknown]
  - Bone disorder [Unknown]
  - Body height decreased [Unknown]
  - Arthralgia [Not Recovered/Not Resolved]
  - Fall [Unknown]
  - Medical device complication [Unknown]
  - Fracture delayed union [Unknown]
  - Vitamin D deficiency [Unknown]
  - Scoliosis [Unknown]

NARRATIVE: CASE EVENT DATE: 20050105
